FAERS Safety Report 8384131-X (Version None)
Quarter: 2012Q2

REPORT INFORMATION
  Report Type: 
  Country: None (occurrence: None)
  Receive Date: 20120524
  Receipt Date: 20120521
  Transmission Date: 20120825
  Serious: Yes (Other)
  Sender: FDA-Public Use
  Company Number: UA-ROCHE-1071316

PATIENT
  Age: 30 Year
  Sex: Male

DRUGS (2)
  1. LUCENTIS [Suspect]
     Indication: PRODUCT USED FOR UNKNOWN INDICATION
     Route: 050
     Dates: start: 20120417, end: 20120517
  2. ACETAZOLAMIDE [Concomitant]

REACTIONS (1)
  - VISUAL ACUITY REDUCED [None]
